FAERS Safety Report 5411823-4 (Version None)
Quarter: 2007Q3

REPORT INFORMATION
  Report Type: 
  Country: None (occurrence: None)
  Receive Date: 20070813
  Receipt Date: 20070801
  Transmission Date: 20080115
  Serious: Yes (Other)
  Sender: FDA-Public Use
  Company Number: US-JNJFOC-20070801403

PATIENT
  Sex: Male
  Weight: 70.31 kg

DRUGS (3)
  1. REMICADE [Suspect]
     Indication: CROHN'S DISEASE
     Route: 042
  2. 6-MP [Concomitant]
     Indication: CROHN'S DISEASE
  3. MULTI-VITAMIN [Concomitant]

REACTIONS (3)
  - BILE DUCT STENOSIS [None]
  - BLOOD BILIRUBIN INCREASED [None]
  - JAUNDICE [None]
